FAERS Safety Report 11617256 (Version 9)
Quarter: 2016Q1

REPORT INFORMATION
  Report Type: Spontaneous
  Country: US (occurrence: US)
  Receive Date: 20151009
  Receipt Date: 20160120
  Transmission Date: 20160525
  Serious: Yes (Death, Hospitalization)
  Sender: FDA-Public Use
  Company Number: US-ACTELION PHARMACEUTICALS US, INC.-A-NJ2015-125115

PATIENT
  Age: 84 Year
  Sex: Female

DRUGS (6)
  1. OPSUMIT [Suspect]
     Active Substance: MACITENTAN
     Indication: PULMONARY ARTERIAL HYPERTENSION
     Dosage: 10 MG, QD
     Route: 048
     Dates: start: 20150910
  2. ADCIRCA [Concomitant]
     Active Substance: TADALAFIL
  3. DIOVAN [Concomitant]
     Active Substance: VALSARTAN
  4. TREPROSTINIL DIOLAMIN [Suspect]
     Active Substance: TREPROSTINIL DIOLAMINE
     Indication: PRODUCT USED FOR UNKNOWN INDICATION
     Dosage: 0.25 MG, UNK
     Route: 065
     Dates: start: 20150923
  5. RIOCIGUAT [Concomitant]
     Active Substance: RIOCIGUAT
     Dosage: 2 MG, UNK
  6. TYVASO [Concomitant]
     Active Substance: TREPROSTINIL

REACTIONS (18)
  - Death [Fatal]
  - Pyuria [Unknown]
  - Panic reaction [Unknown]
  - Weight increased [Unknown]
  - Fatigue [Unknown]
  - Endotracheal intubation [Recovering/Resolving]
  - Swelling face [Unknown]
  - Catheter site pain [Unknown]
  - Oedema [Unknown]
  - Nausea [Unknown]
  - Peripheral swelling [Unknown]
  - Dyspnoea [Recovering/Resolving]
  - Urinary tract infection [Unknown]
  - Urine abnormality [Unknown]
  - Headache [Unknown]
  - Swelling [Unknown]
  - Hypotension [Unknown]
  - Carbon monoxide poisoning [Recovering/Resolving]
